FAERS Safety Report 6831323-4 (Version None)
Quarter: 2010Q3

REPORT INFORMATION
  Report Type: 
  Country: None (occurrence: None)
  Receive Date: 20100712
  Receipt Date: 20100701
  Transmission Date: 20110219
  Serious: Yes (Death, Hospitalization, Other)
  Sender: FDA-Public Use
  Company Number: GB-PFIZER INC-2010062566

PATIENT
  Age: 64 Year
  Sex: Female
  Weight: 90 kg

DRUGS (4)
  1. SUTENT [Suspect]
     Indication: METASTATIC RENAL CELL CARCINOMA
     Dosage: 50 MG, 1X/DAY
     Dates: start: 20100408, end: 20100425
  2. MORPHINE SULFATE [Concomitant]
     Dosage: 30 MG, 2X/DAY
     Route: 048
  3. LANSOPRAZOLE [Concomitant]
     Route: 048
  4. PARACETAMOL [Concomitant]
     Route: 048

REACTIONS (4)
  - HYPERKALAEMIA [None]
  - PLEURAL EFFUSION [None]
  - PYREXIA [None]
  - RENAL FAILURE ACUTE [None]
